FAERS Safety Report 11738351 (Version 2)
Quarter: 2016Q1

REPORT INFORMATION
  Report Type: Spontaneous
  Country: NO (occurrence: NO)
  Receive Date: 20151113
  Receipt Date: 20160225
  Transmission Date: 20160525
  Serious: Yes (Hospitalization)
  Sender: FDA-Public Use
  Company Number: NO-ASTRAZENECA-2015SF08287

PATIENT
  Sex: Male

DRUGS (4)
  1. DIGIMERCK [Concomitant]
     Active Substance: DIGITOXIN
  2. BURINEX [Concomitant]
     Active Substance: BUMETANIDE
  3. SELOKENZOC [Suspect]
     Active Substance: METOPROLOL SUCCINATE
     Indication: CARDIAC DISORDER
     Route: 048
  4. ZYLORIC [Concomitant]
     Active Substance: ALLOPURINOL

REACTIONS (2)
  - Hypersensitivity [Unknown]
  - Pruritus [Unknown]
